FAERS Safety Report 8513141-4 (Version None)
Quarter: 2012Q3

REPORT INFORMATION
  Report Type: 
  Country: None (occurrence: None)
  Receive Date: 20120716
  Receipt Date: 20120706
  Transmission Date: 20120928
  Serious: Yes (Disabling)
  Sender: FDA-Public Use
  Company Number: JP-TEVA-330995ISR

PATIENT
  Sex: Female
  Weight: 60 kg

DRUGS (5)
  1. FUROSEMIDE [Suspect]
     Indication: HYPERTENSION
     Dosage: 20 MILLIGRAM;
     Route: 048
     Dates: start: 20110920, end: 20120428
  2. ASPARA K [Suspect]
     Indication: HYPOKALAEMIA
     Dosage: 4 GRAM;
     Route: 048
     Dates: start: 20120120, end: 20120428
  3. MAGMITT TAB 330MG [Suspect]
     Indication: CONSTIPATION
     Dosage: 990 MILLIGRAM;
     Route: 048
     Dates: start: 20111208, end: 20120428
  4. CALBLOCK [Suspect]
     Indication: HYPERTENSION
     Dosage: 8 MILLIGRAM;
     Route: 048
     Dates: start: 20111109, end: 20120428
  5. CANDESARTAN CILEXETIL [Suspect]
     Indication: HYPERTENSION
     Dosage: 4 MILLIGRAM;
     Route: 048
     Dates: start: 20111115, end: 20120312

REACTIONS (3)
  - HEPATIC FUNCTION ABNORMAL [None]
  - BLOOD ALKALINE PHOSPHATASE INCREASED [None]
  - GAMMA-GLUTAMYLTRANSFERASE INCREASED [None]
